FAERS Safety Report 7402418-1 (Version None)
Quarter: 2011Q2

REPORT INFORMATION
  Report Type: 
  Country: None (occurrence: None)
  Receive Date: 20110408
  Receipt Date: 20110401
  Transmission Date: 20111010
  Serious: Yes (Other)
  Sender: FDA-Public Use
  Company Number: US-BRISTOL-MYERS SQUIBB COMPANY-15639933

PATIENT
  Age: 44 Year
  Sex: Female

DRUGS (2)
  1. CLOZAPINE [Suspect]
  2. ARIPIPRAZOLE [Suspect]

REACTIONS (1)
  - PARKINSON'S DISEASE [None]
